FAERS Safety Report 8596883-4 (Version None)
Quarter: 2012Q3

REPORT INFORMATION
  Report Type: 
  Country: None (occurrence: None)
  Receive Date: 20120815
  Receipt Date: 20120713
  Transmission Date: 20120928
  Serious: Yes (Hospitalization, Disabling, Other)
  Sender: FDA-Public Use
  Company Number: US-009507513-1112USA01239

PATIENT

DRUGS (11)
  1. MK-9278 [Concomitant]
     Dosage: UNK UNK, QD
     Route: 048
  2. CALCIUM (UNSPECIFIED) [Concomitant]
     Dosage: 600 MG, QD
     Route: 048
     Dates: start: 19980101
  3. OMEGA-3-ACID ETHYL ESTERS [Concomitant]
     Dosage: UNK UNK, QD
     Route: 048
  4. ACTONEL [Suspect]
     Indication: OSTEOPENIA
  5. FOSAMAX [Suspect]
     Dosage: 35 MG, QW
     Route: 048
     Dates: start: 20030801, end: 20061222
  6. FOSAMAX [Suspect]
     Indication: OSTEOPOROSIS
     Dosage: 10 MG, QD
     Route: 048
     Dates: start: 19981116, end: 20010321
  7. ASCORBIC ACID [Concomitant]
     Dosage: 500 MG, QD
     Route: 048
     Dates: start: 19980101
  8. ACTONEL [Suspect]
     Dosage: 35 MG, QW
     Route: 048
     Dates: start: 20061221, end: 20110116
  9. ACTONEL [Suspect]
     Indication: OSTEOPOROSIS
  10. VITAMIN D [Concomitant]
     Dosage: 800 IU, BID
     Route: 048
     Dates: start: 19980101
  11. FOSAMAX [Suspect]
     Indication: OSTEOPENIA
     Dosage: 35 MG, QW
     Route: 048
     Dates: start: 20010321, end: 20020201

REACTIONS (30)
  - OSTEOARTHRITIS [None]
  - HYPERSENSITIVITY [None]
  - MITRAL VALVE INCOMPETENCE [None]
  - ATELECTASIS [None]
  - DYSPEPSIA [None]
  - ISCHAEMIC STROKE [None]
  - DEVICE ISSUE [None]
  - ARTHRALGIA [None]
  - METATARSUS PRIMUS VARUS [None]
  - MUSCULOSKELETAL DISCOMFORT [None]
  - OSTEITIS [None]
  - HYPERTENSION [None]
  - SYNOVITIS [None]
  - FEMUR FRACTURE [None]
  - BUNION [None]
  - TENDON RUPTURE [None]
  - DEPRESSION [None]
  - URINARY TRACT INFECTION [None]
  - JOINT DISLOCATION [None]
  - DEVICE DISLOCATION [None]
  - FOOT DEFORMITY [None]
  - DYSTHYMIC DISORDER [None]
  - TENDONITIS [None]
  - ANAEMIA [None]
  - MEDICAL DEVICE SITE REACTION [None]
  - HYPERGLYCAEMIA [None]
  - CEREBROVASCULAR ACCIDENT [None]
  - ARTERIOSCLEROSIS [None]
  - FIBULA FRACTURE [None]
  - SPINAL OSTEOARTHRITIS [None]
